FAERS Safety Report 7130466-8 (Version None)
Quarter: 2010Q4

REPORT INFORMATION
  Report Type: 
  Country: None (occurrence: None)
  Receive Date: 20101201
  Receipt Date: 20101117
  Transmission Date: 20110411
  Serious: Yes (Other)
  Sender: FDA-Public Use
  Company Number: PHHY2010JP78344

PATIENT

DRUGS (3)
  1. DIOVAN [Suspect]
     Dosage: UNK
     Route: 048
  2. HYPEN [Suspect]
     Route: 048
  3. NU-LOTAN [Suspect]
     Dosage: UNK
     Route: 048

REACTIONS (2)
  - ALTERED STATE OF CONSCIOUSNESS [None]
  - CONVULSION [None]
